FAERS Safety Report 7705376-5 (Version None)
Quarter: 2011Q3

REPORT INFORMATION
  Report Type: 
  Country: None (occurrence: None)
  Receive Date: 20110823
  Receipt Date: 20110823
  Transmission Date: 20111222
  Serious: No
  Sender: FDA-Public Use
  Company Number: None

PATIENT
  Sex: Male

DRUGS (2)
  1. ZYTIGA [Suspect]
     Indication: GENERAL SYMPTOM
     Dosage: 250 MG TAKE 4 TABLETS BY MOUTH DAILY ON AN EMPTY STOMACH WITH PREDNISONE
     Route: 048
  2. LISINOPRIL [Concomitant]

REACTIONS (1)
  - ANGIOEDEMA [None]
